FAERS Safety Report 19213093 (Version 1)
Quarter: 2021Q2

REPORT INFORMATION
  Report Type: Spontaneous
  Country: US (occurrence: US)
  Receive Date: 20210504
  Receipt Date: 20210504
  Transmission Date: 20210717
  Serious: No
  Sender: FDA-Public Use
  Company Number: US-ROCHE-2600928

PATIENT
  Sex: Female
  Weight: 67.19 kg

DRUGS (1)
  1. AVASTIN [Suspect]
     Active Substance: BEVACIZUMAB
     Indication: RETINAL VEIN OCCLUSION
     Dosage: NO
     Route: 050
     Dates: end: 20200402

REACTIONS (5)
  - Visual impairment [Recovered/Resolved]
  - Intentional product use issue [Unknown]
  - Blood pressure increased [Not Recovered/Not Resolved]
  - Intraocular pressure increased [Not Recovered/Not Resolved]
  - Off label use [Unknown]
